FAERS Safety Report 15962356 (Version 1)
Quarter: 2020Q3

REPORT INFORMATION
  Report Type: Report from Study
  Country: TR (occurrence: TR)
  Receive Date: 20190214
  Receipt Date: 20190214
  Transmission Date: 20201104
  Serious: Yes (Death, Hospitalization, Other)
  Sender: FDA-Public Use
  Company Number: TR-PFIZER INC-2019065306

PATIENT
  Age: 55 Year
  Sex: Female

DRUGS (1)
  1. TALAZOPARIB. [Suspect]
     Active Substance: TALAZOPARIB

REACTIONS (2)
  - Febrile neutropenia [Fatal]
  - Shock [Unknown]

NARRATIVE: CASE EVENT DATE: 20190204
